FAERS Safety Report 4879664-4 (Version None)
Quarter: 2006Q1

REPORT INFORMATION
  Report Type: 
  Country: None (occurrence: None)
  Receive Date: 20060113
  Receipt Date: 20060109
  Transmission Date: 20060701
  Serious: Yes (Death, Life-Threatening, Other)
  Sender: FDA-Public Use
  Company Number: GB-JNJFOC-20060101562

PATIENT
  Sex: Male

DRUGS (10)
  1. REMICADE [Suspect]
     Indication: RHEUMATOID ARTHRITIS
     Route: 042
  2. METHOTREXATE [Concomitant]
     Route: 065
  3. PREDNISOLONE [Concomitant]
     Route: 065
  4. ASPRIN [Concomitant]
     Route: 065
  5. CODAFEN [Concomitant]
     Route: 065
  6. CODAFEN [Concomitant]
     Route: 065
  7. PAMIDRONATE DISODIUM [Concomitant]
     Route: 065
  8. PARACETAMOL [Concomitant]
     Route: 065
  9. RANITIDINE [Concomitant]
     Route: 065
  10. TEMAZEPAM [Concomitant]
     Route: 065

REACTIONS (2)
  - LUNG NEOPLASM MALIGNANT [None]
  - METASTATIC NEOPLASM [None]
